FAERS Safety Report 6770652-X (Version None)
Quarter: 2010Q2

REPORT INFORMATION
  Report Type: 
  Country: None (occurrence: None)
  Receive Date: 20100615
  Receipt Date: 20100608
  Transmission Date: 20101027
  Serious: Yes (Life-Threatening, Hospitalization, Other)
  Sender: FDA-Public Use
  Company Number: GB-WATSON-2010-07383

PATIENT

DRUGS (4)
  1. MORPHINE SULFATE INJ [Suspect]
     Indication: ANALGESIC THERAPY
     Dosage: 15 UG/KG, AVERAGE DOSE AT 37 HOURS POST-OP
     Route: 065
  2. MORPHINE SULFATE INJ [Suspect]
     Dosage: 10 UG/KG PER HOUR POST-OP
     Route: 065
  3. MORPHINE SULFATE INJ [Suspect]
     Dosage: .1 MG/KG, DURING SURGERY
     Route: 065
  4. FENTANYL CITRATE [Suspect]
     Indication: ANALGESIC THERAPY
     Dosage: 2 UG/KG, UNK
     Route: 065

REACTIONS (4)
  - CARDIO-RESPIRATORY ARREST [None]
  - IRRITABILITY [None]
  - OXYGEN SATURATION DECREASED [None]
  - PNEUMONIA ASPIRATION [None]
